FAERS Safety Report 4863981-8 (Version None)
Quarter: 2005Q4

REPORT INFORMATION
  Report Type: 
  Country: None (occurrence: None)
  Receive Date: 20051222
  Receipt Date: 20051201
  Transmission Date: 20060501
  Serious: Yes (Other)
  Sender: FDA-Public Use
  Company Number: CA-BRISTOL-MYERS SQUIBB COMPANY-13202783

PATIENT
  Age: 54 Year
  Sex: Male
  Weight: 82 kg

DRUGS (6)
  1. CISPLATIN [Suspect]
     Indication: NON-SMALL CELL LUNG CANCER
     Dosage: 5TH COURSE. THERAPY START DATE 05-AUG-05. DOSE DELAYED/OMITTED. CYCLE 6 GIVEN 30-NOV-05.
     Route: 042
     Dates: start: 20051109, end: 20051109
  2. GEMCITABINE [Suspect]
     Indication: NON-SMALL CELL LUNG CANCER
     Dosage: 5TH COURSE. THERAPY START DATE 05-AUG-05. DOSE DELAYED/OMITTED. CYCLE 6 GIVEN 30-NOV-05.
     Route: 042
     Dates: start: 20051102, end: 20051102
  3. EPREX [Suspect]
     Dosage: 40,000 UNITS (U) WEEKLY
     Route: 058
     Dates: start: 20050930, end: 20051209
  4. KYTRIL [Concomitant]
     Indication: NAUSEA
  5. DEXAMETHASONE [Concomitant]
     Indication: NAUSEA
  6. PROCHLORPERAZINE [Concomitant]
     Indication: NAUSEA

REACTIONS (2)
  - DEEP VEIN THROMBOSIS [None]
  - PULMONARY EMBOLISM [None]
